FAERS Safety Report 16935682 (Version 2)
Quarter: 2020Q2

REPORT INFORMATION
  Report Type: Spontaneous
  Country: IN (occurrence: IN)
  Receive Date: 20191018
  Receipt Date: 20200630
  Transmission Date: 20200713
  Serious: Yes (Other)
  Sender: FDA-Public Use
  Company Number: IN-PFIZER INC-2019155950

PATIENT
  Age: 45 Year
  Sex: Female

DRUGS (3)
  1. PALBACE [Suspect]
     Active Substance: PALBOCICLIB
     Indication: BREAST CANCER METASTATIC
     Dosage: 125 MG, 1X/DAY (X6MONTHS)
     Route: 048
     Dates: start: 20171207
  2. FEMARA [Concomitant]
     Active Substance: LETROZOLE
     Dosage: UNK (X6MONTHS)
     Dates: start: 20171219
  3. CALMING [Concomitant]
     Dosage: UNK (X6MONTHS)
     Dates: start: 20171219

REACTIONS (3)
  - Neuropathy peripheral [Unknown]
  - Blood creatinine abnormal [Unknown]
  - Skin hypertrophy [Unknown]

NARRATIVE: CASE EVENT DATE: 20190329
